FAERS Safety Report 5344220-0 (Version None)
Quarter: 2007Q2

REPORT INFORMATION
  Report Type: 
  Country: None (occurrence: None)
  Receive Date: 20070531
  Receipt Date: 20070531
  Transmission Date: 20071010
  Serious: Yes (Hospitalization, Other)
  Sender: FDA-Public Use
  Company Number: None

PATIENT
  Age: 80 Year
  Sex: Female

DRUGS (7)
  1. TAPAZOLE [Suspect]
     Indication: HYPERTHYROIDISM
     Dates: end: 20060911
  2. AZTREONAM [Concomitant]
  3. VANCOMYCIN HCL [Concomitant]
  4. HEPARIN [Concomitant]
  5. DILAUDID [Concomitant]
  6. AVELOX [Concomitant]
  7. ALDACTONE [Concomitant]

REACTIONS (2)
  - AGRANULOCYTOSIS [None]
  - LEUKOPENIA [None]
